FAERS Safety Report 16542281 (Version 1)
Quarter: 2019Q3

REPORT INFORMATION
  Report Type: Spontaneous
  Country: DE (occurrence: DE)
  Receive Date: 20190708
  Receipt Date: 20190708
  Transmission Date: 20191004
  Serious: Yes (Hospitalization)
  Sender: FDA-Public Use
  Company Number: PHHY2019DE154528

PATIENT
  Age: 2 Year

DRUGS (6)
  1. IBUPROFEN. [Suspect]
     Active Substance: IBUPROFEN
     Dosage: 11.25 ML, QD
     Route: 065
  2. HUMIRA [Suspect]
     Active Substance: ADALIMUMAB
     Indication: JUVENILE IDIOPATHIC ARTHRITIS
     Dosage: 20 MG, Q2W
     Route: 058
     Dates: start: 20171109, end: 20171130
  3. IBUPROFEN. [Suspect]
     Active Substance: IBUPROFEN
     Indication: PRODUCT USED FOR UNKNOWN INDICATION
     Dosage: 450 MG, QD
     Route: 065
     Dates: start: 20170720
  4. MTX [Suspect]
     Active Substance: METHOTREXATE SODIUM
     Indication: PRODUCT USED FOR UNKNOWN INDICATION
     Dosage: 7.5 MG, QW
     Route: 065
     Dates: start: 20170726, end: 20171130
  5. FOLIC ACID. [Concomitant]
     Active Substance: FOLIC ACID
     Indication: PRODUCT USED FOR UNKNOWN INDICATION
     Dosage: 5 MG, QW
     Route: 065
     Dates: start: 20170726
  6. FOLIC ACID. [Concomitant]
     Active Substance: FOLIC ACID
     Dosage: 2.5 MG, Q2W
     Route: 065

REACTIONS (2)
  - Staphylococcal infection [Recovered/Resolved]
  - Septic arthritis streptococcal [Recovered/Resolved]

NARRATIVE: CASE EVENT DATE: 20171130
